FAERS Safety Report 24032045 (Version 1)
Quarter: 2024Q2

REPORT INFORMATION
  Report Type: Spontaneous
  Country: US (occurrence: US)
  Receive Date: 20240630
  Receipt Date: 20240630
  Transmission Date: 20240716
  Serious: Yes (Life-Threatening, Hospitalization, Disabling, Other)
  Sender: FDA-Public Use
  Company Number: US-MLMSERVICE-20240617-PI081530-00252-1

PATIENT
  Age: 26 Year
  Sex: Male

DRUGS (3)
  1. OXYCODONE [Suspect]
     Active Substance: OXYCODONE\OXYCODONE HYDROCHLORIDE
     Indication: Product used for unknown indication
     Dosage: UNK, OFTEN INGESTED ORAL OXYCODONE
     Route: 048
  2. OXYCODONE [Suspect]
     Active Substance: OXYCODONE\OXYCODONE HYDROCHLORIDE
     Dosage: 40 DOSAGE FORM (APPROXIMATELY 40?50 OXYCODONE TABLETS)
     Route: 048
  3. OXYCODONE [Suspect]
     Active Substance: OXYCODONE\OXYCODONE HYDROCHLORIDE
     Dosage: 50 DOSAGE FORM (APPROXIMATELY 40?50 OXYCODONE TABLETS)
     Route: 048

REACTIONS (23)
  - Respiratory acidosis [Unknown]
  - Quadriplegia [Recovering/Resolving]
  - Confabulation [Recovered/Resolved]
  - Hyperkalaemia [Unknown]
  - Brain injury [Recovered/Resolved]
  - Pneumonia aspiration [Unknown]
  - Loss of consciousness [Recovered/Resolved]
  - Unresponsive to stimuli [Recovered/Resolved]
  - Anxiety [Recovered/Resolved]
  - Toxic leukoencephalopathy [Recovered/Resolved]
  - Acute respiratory failure [Unknown]
  - Cardio-respiratory arrest [Recovered/Resolved]
  - Pulseless electrical activity [Recovered/Resolved]
  - Coma [Recovered/Resolved]
  - Muscular weakness [Recovering/Resolving]
  - Anosognosia [Recovered/Resolved]
  - Rhabdomyolysis [Recovering/Resolving]
  - Acute kidney injury [Unknown]
  - Blindness cortical [Recovered/Resolved]
  - Depressed mood [Recovered/Resolved]
  - Acute psychosis [Recovered/Resolved]
  - Drug abuse [Recovering/Resolving]
  - Overdose [Recovering/Resolving]
